FAERS Safety Report 9383774 (Version 3)
Quarter: 2013Q3

REPORT INFORMATION
  Report Type: Spontaneous
  Country: US (occurrence: US)
  Receive Date: 20130704
  Receipt Date: 20130801
  Transmission Date: 20140515
  Serious: Yes (Life-Threatening, Hospitalization, Disabling, Other)
  Sender: FDA-Public Use
  Company Number: US-MERCK-1307USA001724

PATIENT
  Age: 73 Year
  Sex: Male
  Weight: 118.37 kg

DRUGS (4)
  1. JANUVIA [Suspect]
     Indication: DIABETES MELLITUS
     Dosage: 100 MG, ONCE DAILY
     Route: 048
     Dates: start: 20110713, end: 20130423
  2. METFORMIN [Concomitant]
     Indication: DIABETES MELLITUS
     Dosage: TOTAL DAILY DOSE 1000 MG
     Route: 048
     Dates: start: 2000
  3. LIPITOR [Concomitant]
     Indication: HIGH DENSITY LIPOPROTEIN
     Dosage: TOTAL DAILY DOSE 80 MG
     Route: 048
     Dates: start: 2000
  4. TOPROL XL TABLETS [Concomitant]
     Indication: BLOOD PRESSURE
     Dosage: TOTAL DAILY DOSE 25 MG
     Route: 048
     Dates: start: 2000

REACTIONS (5)
  - Pancreatic carcinoma [Recovering/Resolving]
  - Nephrolithiasis [Unknown]
  - Calculus bladder [Recovering/Resolving]
  - Syncope [Unknown]
  - Diverticulum intestinal [Unknown]
